FAERS Safety Report 5689086-4 (Version None)
Quarter: 2008Q1

REPORT INFORMATION
  Report Type: 
  Country: None (occurrence: None)
  Receive Date: 20080331
  Receipt Date: 20070528
  Transmission Date: 20080703
  Serious: Yes (Death, Hospitalization)
  Sender: FDA-Public Use
  Company Number: CY-ROCHE-499657

PATIENT
  Sex: Female

DRUGS (1)
  1. XELODA [Suspect]
     Dosage: DOSE REPORTED AS 2X1 G/M2
     Route: 048
     Dates: start: 20070514, end: 20070517

REACTIONS (7)
  - DIARRHOEA [None]
  - LEUKOPENIA [None]
  - NAUSEA [None]
  - ORAL DISORDER [None]
  - SEPTIC SHOCK [None]
  - THROMBOCYTOPENIA [None]
  - VOMITING [None]
